FAERS Safety Report 9703783 (Version 1)
Quarter: 2013Q4

REPORT INFORMATION
  Report Type: Spontaneous
  Country: RO (occurrence: RO)
  Receive Date: 20131122
  Receipt Date: 20131122
  Transmission Date: 20140711
  Serious: Yes (Other)
  Sender: FDA-Public Use
  Company Number: RO-ELI_LILLY_AND_COMPANY-RO201311003619

PATIENT
  Age: 62 Year
  Sex: Male

DRUGS (4)
  1. PEMETREXED [Suspect]
     Indication: PLEURAL MESOTHELIOMA
     Dosage: 500 MG/M2, UNK
     Route: 042
  2. CISPLATIN [Concomitant]
     Indication: PLEURAL MESOTHELIOMA
     Dosage: 75 MG/M2, UNK
     Route: 042
  3. DEXAMETHASONE [Concomitant]
  4. FOLIC ACID [Concomitant]

REACTIONS (12)
  - Hepatocellular injury [Unknown]
  - Malignant neoplasm progression [Unknown]
  - Cardiac failure [Unknown]
  - Atrial fibrillation [Unknown]
  - Dyspnoea [Unknown]
  - Neutropenia [Unknown]
  - Febrile neutropenia [Unknown]
  - Infection [Unknown]
  - Anaemia [Unknown]
  - Thrombocytopenia [Unknown]
  - Herpes zoster [Unknown]
  - Leukopenia [Unknown]
